FAERS Safety Report 7934799-4 (Version None)
Quarter: 2011Q4

REPORT INFORMATION
  Report Type: 
  Country: None (occurrence: None)
  Receive Date: 20111122
  Receipt Date: 20111117
  Transmission Date: 20120403
  Serious: Yes (Life-Threatening, Hospitalization)
  Sender: FDA-Public Use
  Company Number: JP-ASTRAZENECA-2009SE18657

PATIENT
  Age: 77 Year
  Sex: Female
  Weight: 35 kg

DRUGS (6)
  1. IRESSA [Suspect]
     Route: 048
     Dates: start: 20110517
  2. NORVASC [Concomitant]
     Route: 048
     Dates: start: 20070510
  3. IRESSA [Suspect]
     Indication: LUNG ADENOCARCINOMA
     Route: 048
     Dates: start: 20081025, end: 20091005
  4. URSO 250 [Concomitant]
     Route: 048
     Dates: start: 20070510
  5. FERROUS CITRATE [Concomitant]
     Route: 048
     Dates: start: 20081005, end: 20110419
  6. CLEANAL [Concomitant]
     Route: 048
     Dates: start: 20070731

REACTIONS (4)
  - INFECTIOUS PLEURAL EFFUSION [None]
  - INFECTIVE SPONDYLITIS [None]
  - CYSTITIS HAEMORRHAGIC [None]
  - RASH [None]
